FAERS Safety Report 8453732-2 (Version None)
Quarter: 2012Q2

REPORT INFORMATION
  Report Type: 
  Country: None (occurrence: None)
  Receive Date: 20120620
  Receipt Date: 20120615
  Transmission Date: 20120825
  Serious: Yes (Hospitalization, Other)
  Sender: FDA-Public Use
  Company Number: US-ACTELION-A-NJ2012-60729

PATIENT

DRUGS (7)
  1. TRACLEER [Suspect]
     Dosage: 1 TAB BID
     Route: 048
     Dates: start: 20120101
  2. TRACLEER [Suspect]
     Indication: PULMONARY ARTERIAL HYPERTENSION
     Dosage: 1/2 TAB TWICE DAILY
     Route: 048
     Dates: start: 20120101, end: 20120101
  3. TRACLEER [Suspect]
     Dosage: UNK
     Route: 048
     Dates: start: 20090918
  4. REVATIO [Concomitant]
  5. VENTAVIS [Suspect]
     Indication: PULMONARY ARTERIAL HYPERTENSION
     Dosage: UNK
     Route: 055
     Dates: start: 20091116, end: 20120101
  6. VENTAVIS [Suspect]
     Dosage: UNK
     Route: 055
     Dates: start: 20120101
  7. COUMADIN [Concomitant]

REACTIONS (3)
  - MITRAL VALVE REPLACEMENT [None]
  - PULMONARY ARTERIAL HYPERTENSION [None]
  - MITRAL VALVE STENOSIS [None]
